FAERS Safety Report 20436995 (Version 1)
Quarter: 2022Q1

REPORT INFORMATION
  Report Type: Spontaneous
  Country: BE (occurrence: BE)
  Receive Date: 20220207
  Receipt Date: 20220207
  Transmission Date: 20220424
  Serious: Yes (Other)
  Sender: FDA-Public Use
  Company Number: BE-Accord-252628

PATIENT
  Age: 52 Year
  Sex: Male

DRUGS (7)
  1. FLUOROURACIL [Suspect]
     Active Substance: FLUOROURACIL
     Indication: Rectal cancer metastatic
     Dosage: 2400 MG/M2 OVER 46H HOME (PUMP)?400MG/M2 IV BOLUS (HDJ -DAY HOSPITAL)
     Route: 041
     Dates: start: 201304
  2. AVASTIN [Concomitant]
     Active Substance: BEVACIZUMAB
     Indication: Rectal cancer metastatic
     Dosage: 5MG/KG OVER 0.5-1.5 HOURS
     Route: 041
     Dates: start: 201304
  3. LEUCOVORIN [Concomitant]
     Active Substance: LEUCOVORIN
     Indication: Rectal cancer metastatic
     Dosage: 200MG/M2 OVER 2 HOURS
     Route: 041
     Dates: start: 201304
  4. OXALIPLATIN [Concomitant]
     Active Substance: OXALIPLATIN
     Indication: Rectal cancer metastatic
     Dosage: 80MG/M2 OVER 2 HOURS
     Route: 041
     Dates: start: 201304
  5. ACETAMINOPHEN [Concomitant]
     Active Substance: ACETAMINOPHEN
     Indication: Analgesic therapy
  6. METAMIZOLE [Concomitant]
     Active Substance: METAMIZOLE
     Indication: Analgesic therapy
  7. POLYETHYLENE GLYCOLS [Concomitant]
     Active Substance: POLYETHYLENE GLYCOLS

REACTIONS (1)
  - Pericarditis [Recovered/Resolved]
